FAERS Safety Report 8620896-7 (Version None)
Quarter: 2012Q3

REPORT INFORMATION
  Report Type: 
  Country: None (occurrence: None)
  Receive Date: 20120824
  Receipt Date: 20120814
  Transmission Date: 20120928
  Serious: Yes (Other)
  Sender: FDA-Public Use
  Company Number: CHPA2012CA015744

PATIENT
  Age: 77 Year
  Sex: Female

DRUGS (2)
  1. BUCKLEY'S COMPLETE LIQUID GELS PLUS MUCOUS RELIEF [Suspect]
     Indication: COUGH
     Dosage: 1-2 AS NEEDED
     Route: 048
     Dates: start: 20120301, end: 20120301
  2. BUCKLEY'S MIXTURE [Suspect]
     Indication: COUGH
     Dosage: ^3-4 DOSES^
     Route: 065
     Dates: start: 20120101, end: 20120101

REACTIONS (3)
  - DEAFNESS [None]
  - URTICARIA [None]
  - DYSPHONIA [None]
